FAERS Safety Report 5764249-8 (Version None)
Quarter: 2008Q2

REPORT INFORMATION
  Report Type: 
  Country: None (occurrence: None)
  Receive Date: 20080604
  Receipt Date: 20080521
  Transmission Date: 20081010
  Serious: Yes (Hospitalization)
  Sender: FDA-Public Use
  Company Number: 2008AL005645

PATIENT
  Age: 64 Year
  Sex: Female

DRUGS (6)
  1. DIGOXIN [Suspect]
     Dosage: 0.25 MG, DAILY, PO
     Route: 048
  2. HEPARIN [Concomitant]
  3. PREMARIN [Concomitant]
  4. ZYRTEC [Concomitant]
  5. TOPROL-XL [Concomitant]
  6. SYNTHROID [Concomitant]

REACTIONS (5)
  - ANGINA PECTORIS [None]
  - DIZZINESS [None]
  - HYPOTENSION [None]
  - NAUSEA [None]
  - SINUS TACHYCARDIA [None]
